FAERS Safety Report 25577607 (Version 1)
Quarter: 2025Q3

REPORT INFORMATION
  Report Type: Spontaneous
  Country: EU (occurrence: EU)
  Receive Date: 20250718
  Receipt Date: 20250718
  Transmission Date: 20251020
  Serious: Yes (Death, Life-Threatening, Disabling, Congenital Anomaly)
  Sender: ZAMBON
  Company Number: EU-EMB-M202400470-1

PATIENT

DRUGS (1)
  1. FOSFOMYCIN TROMETHAMINE [Suspect]
     Active Substance: FOSFOMYCIN TROMETHAMINE
     Indication: Urinary tract infection
     Route: 048
     Dates: start: 202304, end: 202304

REACTIONS (3)
  - Congenital central nervous system anomaly [Fatal]
  - Abdominal wall anomaly [Fatal]
  - Foetal exposure during pregnancy [Unknown]
